FAERS Safety Report 19929113 (Version 5)
Quarter: 2022Q2

REPORT INFORMATION
  Report Type: Report from Study
  Country: US (occurrence: US)
  Receive Date: 20211007
  Receipt Date: 20220429
  Transmission Date: 20220721
  Serious: No
  Sender: FDA-Public Use
  Company Number: NVSC2021US229167

PATIENT
  Sex: Female

DRUGS (1)
  1. ENTRESTO [Suspect]
     Active Substance: SACUBITRIL\VALSARTAN
     Indication: Product used for unknown indication
     Dosage: 1 DF, BID (ONE PILL IN THE MORNING AND 2 PILLS IN THE EVENING)
     Route: 065

REACTIONS (6)
  - Decreased appetite [Unknown]
  - Cough [Unknown]
  - Dizziness [Recovering/Resolving]
  - Heart rate decreased [Unknown]
  - Product prescribing issue [Unknown]
  - Wrong technique in product usage process [Unknown]
